FAERS Safety Report 9348429 (Version 1)
Quarter: 2013Q2

REPORT INFORMATION
  Report Type: Spontaneous
  Country: US (occurrence: None)
  Receive Date: 20130613
  Receipt Date: 20130613
  Transmission Date: 20140414
  Serious: Yes (Other)
  Sender: FDA-Public Use
  Company Number: None

PATIENT
  Age: 35 Year
  Sex: Male
  Weight: 104.33 kg

DRUGS (1)
  1. METHYLPREDNISOLONE [Suspect]
     Indication: PAIN
     Dosage: MULTIPLE INJECTIONS
     Route: 030
     Dates: start: 20130201, end: 20130501

REACTIONS (5)
  - Pain [None]
  - Pyrexia [None]
  - Rash [None]
  - Flushing [None]
  - Nausea [None]
